FAERS Safety Report 18339282 (Version 2)
Quarter: 2020Q4

REPORT INFORMATION
  Report Type: Spontaneous
  Country: US (occurrence: US)
  Receive Date: 20201002
  Receipt Date: 20201204
  Transmission Date: 20210113
  Serious: No
  Sender: FDA-Public Use
  Company Number: US-PFIZER INC-2020381043

PATIENT
  Age: 80 Year
  Sex: Female

DRUGS (2)
  1. LOSARTAN ZYDUS [Concomitant]
     Active Substance: LOSARTAN POTASSIUM
     Dosage: UNK
  2. ATORVASTATIN CALCIUM. [Suspect]
     Active Substance: ATORVASTATIN CALCIUM
     Dosage: UNK

REACTIONS (3)
  - Drug hypersensitivity [Unknown]
  - Arthralgia [Unknown]
  - Myalgia [Unknown]
